FAERS Safety Report 8174116-0 (Version None)
Quarter: 2012Q1

REPORT INFORMATION
  Report Type: 
  Country: None (occurrence: None)
  Receive Date: 20120224
  Receipt Date: 20120213
  Transmission Date: 20120608
  Serious: Yes (Hospitalization)
  Sender: FDA-Public Use
  Company Number: 2012MA002027

PATIENT
  Age: 43 Year
  Sex: Female
  Weight: 84 kg

DRUGS (1)
  1. PROPYL-THIOURACIL [Suspect]
     Indication: BASEDOW'S DISEASE
     Dosage: 300 MG;QD

REACTIONS (9)
  - ANTI-NEUTROPHIL CYTOPLASMIC ANTIBODY POSITIVE VASCULITIS [None]
  - PLEURAL EFFUSION [None]
  - ACUTE FEBRILE NEUTROPHILIC DERMATOSIS [None]
  - PYREXIA [None]
  - DYSPNOEA [None]
  - MYALGIA [None]
  - HAEMATURIA [None]
  - FATIGUE [None]
  - PANCYTOPENIA [None]
